FAERS Safety Report 8393013-9 (Version None)
Quarter: 2012Q2

REPORT INFORMATION
  Report Type: 
  Country: None (occurrence: None)
  Receive Date: 20120529
  Receipt Date: 20120327
  Transmission Date: 20120825
  Serious: No
  Sender: FDA-Public Use
  Company Number: US-ABBOTT-12P-163-0919416-00

PATIENT
  Sex: Male
  Weight: 68.1 kg

DRUGS (2)
  1. ANDROGEL [Suspect]
     Route: 061
     Dates: start: 20120301
  2. ANDROGEL [Suspect]
     Indication: BLOOD TESTOSTERONE DECREASED
     Route: 061
     Dates: start: 20120101, end: 20120301

REACTIONS (1)
  - BLOOD TESTOSTERONE DECREASED [None]
